FAERS Safety Report 10193207 (Version 1)
Quarter: 2014Q2

REPORT INFORMATION
  Report Type: Spontaneous
  Country: US (occurrence: US)
  Receive Date: 20140524
  Receipt Date: 20140524
  Transmission Date: 20141212
  Serious: No
  Sender: FDA-Public Use
  Company Number: US-SA-2013SA116440

PATIENT
  Age: 77 Year
  Sex: Male
  Weight: 90.71 kg

DRUGS (6)
  1. SOLOSTAR [Suspect]
     Indication: TYPE 2 DIABETES MELLITUS
     Dates: start: 2007
  2. LANTUS SOLOSTAR [Suspect]
     Indication: TYPE 2 DIABETES MELLITUS
     Dosage: DOSE:80 UNIT(S)
     Route: 051
     Dates: start: 2007
  3. ASPIRIN [Concomitant]
  4. AMLODIPINE [Concomitant]
  5. FENOFIBRATE [Concomitant]
  6. LOSARTAN [Concomitant]

REACTIONS (1)
  - Injection site injury [Unknown]
